FAERS Safety Report 5698116-5 (Version None)
Quarter: 2008Q2

REPORT INFORMATION
  Report Type: 
  Country: None (occurrence: None)
  Receive Date: 20080408
  Receipt Date: 20080331
  Transmission Date: 20081010
  Serious: Yes (Hospitalization, Disabling, Other)
  Sender: FDA-Public Use
  Company Number: US-PFIZER INC-2006150054

PATIENT
  Sex: Female
  Weight: 115.7 kg

DRUGS (5)
  1. CELEBREX [Suspect]
     Indication: OSTEOARTHRITIS
     Route: 048
  2. VIOXX [Suspect]
     Indication: OSTEOARTHRITIS
     Route: 048
  3. AVAPRO [Concomitant]
     Indication: CARDIAC DISORDER
     Dates: start: 19990626, end: 20020222
  4. CARDIZEM [Concomitant]
     Indication: CARDIAC DISORDER
     Dates: start: 19990626, end: 20010901
  5. TERAZOSIN HCL [Concomitant]
     Indication: HYPERTENSION
     Dates: start: 20000506, end: 20040603

REACTIONS (6)
  - BLINDNESS [None]
  - CONVULSION [None]
  - DEEP VEIN THROMBOSIS [None]
  - PULMONARY EMBOLISM [None]
  - TRANSIENT ISCHAEMIC ATTACK [None]
  - URINARY INCONTINENCE [None]
